FAERS Safety Report 10682631 (Version 1)
Quarter: 2014Q4

REPORT INFORMATION
  Report Type: Spontaneous
  Country: FR (occurrence: FR)
  Receive Date: 20141230
  Receipt Date: 20141230
  Transmission Date: 20150529
  Serious: Yes (Hospitalization, Other)
  Sender: FDA-Public Use
  Company Number: FR-PFIZER INC-2014359283

PATIENT
  Age: 85 Year
  Sex: Female

DRUGS (8)
  1. STILNOX [Concomitant]
     Active Substance: ZOLPIDEM TARTRATE
     Dosage: UNK
  2. LAMALINE [Concomitant]
     Active Substance: ACETAMINOPHEN\CAFFEINE\OPIUM
     Dosage: UNK
  3. CORDARONE [Suspect]
     Active Substance: AMIODARONE HYDROCHLORIDE
     Dosage: 1.5 DF, DAILY
     Route: 048
  4. PRADAXA [Interacting]
     Active Substance: DABIGATRAN ETEXILATE MESYLATE
     Indication: ATRIAL FIBRILLATION
     Dosage: 1 DF, 2X/DAY
     Route: 048
     Dates: start: 2012, end: 20141208
  5. NISISCO [Concomitant]
     Active Substance: HYDROCHLOROTHIAZIDE\VALSARTAN
     Dosage: UNK
  6. VASTEN [Concomitant]
     Active Substance: PRAVASTATIN SODIUM
     Dosage: UNK
  7. LEVOTHYROX [Concomitant]
     Active Substance: LEVOTHYROXINE
     Dosage: UNK
  8. DUPHALAC [Concomitant]
     Active Substance: LACTULOSE
     Dosage: UNK

REACTIONS (4)
  - Joint swelling [Not Recovered/Not Resolved]
  - Drug interaction [Unknown]
  - Fall [Unknown]
  - Injury [Unknown]

NARRATIVE: CASE EVENT DATE: 20141207
